FAERS Safety Report 25081742 (Version 2)
Quarter: 2025Q2

REPORT INFORMATION
  Report Type: Spontaneous
  Country: JP (occurrence: JP)
  Receive Date: 20250317
  Receipt Date: 20250421
  Transmission Date: 20250716
  Serious: Yes (Hospitalization)
  Sender: AMGEN
  Company Number: JP-KYOWAKIRIN-2025KK004513

PATIENT

DRUGS (1)
  1. DARBEPOETIN ALFA [Suspect]
     Active Substance: DARBEPOETIN ALFA
     Indication: Nephrogenic anaemia
     Dosage: 60 UG, 1X/WEEK
     Route: 065

REACTIONS (3)
  - Hospitalisation [Recovered/Resolved]
  - Inflammation [Recovered/Resolved]
  - Serum ferritin increased [Recovered/Resolved]
